FAERS Safety Report 4603047-5 (Version None)
Quarter: 2005Q1

REPORT INFORMATION
  Report Type: 
  Country: None (occurrence: None)
  Receive Date: 20050307
  Receipt Date: 20050221
  Transmission Date: 20050727
  Serious: Yes (Life-Threatening, Hospitalization, Disabling)
  Sender: FDA-Public Use
  Company Number: 05H-028-0289810-00

PATIENT
  Age: 41 Year
  Sex: Male
  Weight: 76.05 kg

DRUGS (4)
  1. STERILE WATER FOR INJECTION, PRES.-FREE, USP, VIAL (STERILE WATER FOR [Suspect]
     Dates: start: 20040915
  2. PEGETRON [Suspect]
     Indication: HEPATITIS C
     Dosage: 150 MCG
     Dates: start: 20040915
  3. CLOXACILLIN [Concomitant]
  4. AMITRIPTYLINE HYDROCHLORIDE [Concomitant]

REACTIONS (16)
  - ABDOMINAL PAIN [None]
  - ARTHRALGIA [None]
  - BACK PAIN [None]
  - BLADDER DISORDER [None]
  - DIARRHOEA [None]
  - EXTRADURAL ABSCESS [None]
  - INTESTINAL FUNCTIONAL DISORDER [None]
  - MYALGIA [None]
  - NAUSEA [None]
  - NEUTROPENIA [None]
  - PARAPLEGIA [None]
  - PYREXIA [None]
  - SPINAL CORD COMPRESSION [None]
  - STAPHYLOCOCCAL BACTERAEMIA [None]
  - STAPHYLOCOCCAL SEPSIS [None]
  - VOMITING [None]
